FAERS Safety Report 23276274 (Version 1)
Quarter: 2023Q4

REPORT INFORMATION
  Report Type: Report from Study
  Country: CA (occurrence: None)
  Receive Date: 20231208
  Receipt Date: 20231208
  Transmission Date: 20240110
  Serious: Yes (Other)
  Sender: FDA-Public Use
  Company Number: 2023A275025

PATIENT
  Age: 25455 Day
  Sex: Female

DRUGS (3)
  1. TEZSPIRE [Suspect]
     Active Substance: TEZEPELUMAB-EKKO
     Indication: Asthma
     Route: 058
     Dates: start: 20231129
  2. ALBUTEROL [Concomitant]
     Active Substance: ALBUTEROL
     Dosage: 100 MCG AS NEEDED
  3. GLYCOPYRROLATE\INDACATEROL\MOMETASONE FUROATE [Concomitant]
     Active Substance: GLYCOPYRROLATE\INDACATEROL\MOMETASONE FUROATE
     Dosage: 160MCG 1 TIME PER DAY

REACTIONS (4)
  - Myocardial infarction [Unknown]
  - Breast pain [Unknown]
  - Burning sensation [Unknown]
  - Lung disorder [Unknown]

NARRATIVE: CASE EVENT DATE: 20231130
